FAERS Safety Report 17620330 (Version 2)
Quarter: 2020Q2

REPORT INFORMATION
  Report Type: Spontaneous
  Country: US (occurrence: US)
  Receive Date: 20200403
  Receipt Date: 20200522
  Transmission Date: 20200713
  Serious: Yes (Other)
  Sender: FDA-Public Use
  Company Number: US-ADVANZ PHARMA-202003002212

PATIENT

DRUGS (8)
  1. AMINOSALICYLIC ACID [Suspect]
     Active Substance: AMINOSALICYLIC ACID
     Indication: MALIGNANT ATROPHIC PAPULOSIS
     Dosage: 81 MG, QD
  2. MYCOPHENOLATE MOFETIL. [Suspect]
     Active Substance: MYCOPHENOLATE MOFETIL
     Indication: MALIGNANT ATROPHIC PAPULOSIS
     Dosage: 1 G, QD
  3. QUINACRINE [Concomitant]
     Active Substance: QUINACRINE
     Indication: CUTANEOUS LUPUS ERYTHEMATOSUS
  4. HYDROXYCHLOROQUINE [Suspect]
     Active Substance: HYDROXYCHLOROQUINE
     Indication: CUTANEOUS LUPUS ERYTHEMATOSUS
  5. QUINACRINE [Concomitant]
     Active Substance: QUINACRINE
     Indication: MALIGNANT ATROPHIC PAPULOSIS
     Dosage: 100 MG, QD
  6. AMINOSALICYLIC ACID [Suspect]
     Active Substance: AMINOSALICYLIC ACID
     Indication: CUTANEOUS LUPUS ERYTHEMATOSUS
  7. HYDROXYCHLOROQUINE [Suspect]
     Active Substance: HYDROXYCHLOROQUINE
     Indication: MALIGNANT ATROPHIC PAPULOSIS
     Dosage: 400 MG, QD
  8. MYCOPHENOLATE MOFETIL. [Suspect]
     Active Substance: MYCOPHENOLATE MOFETIL
     Indication: CUTANEOUS LUPUS ERYTHEMATOSUS

REACTIONS (2)
  - Disease progression [Unknown]
  - Infection [Unknown]
